FAERS Safety Report 26082834 (Version 1)
Quarter: 2025Q4

REPORT INFORMATION
  Report Type: Spontaneous
  Country: JP (occurrence: JP)
  Receive Date: 20251124
  Receipt Date: 20251124
  Transmission Date: 20260118
  Serious: Yes (Hospitalization, Other)
  Sender: ALEXION PHARMACEUTICALS
  Company Number: JP-ASTRAZENECA-202511JPN008709JP

PATIENT
  Age: 72 Year
  Sex: Male
  Weight: 58 kg

DRUGS (4)
  1. IMFINZI [Suspect]
     Active Substance: DURVALUMAB
     Indication: Cholangiocarcinoma
     Dosage: 1500 MILLIGRAM, 1 TIMES
     Dates: start: 20250722, end: 20250912
  2. IMFINZI [Suspect]
     Active Substance: DURVALUMAB
     Indication: Cholangiocarcinoma
  3. CISPLATIN [Concomitant]
     Active Substance: CISPLATIN
     Dosage: UNK
     Route: 065
     Dates: start: 20250722, end: 20250912
  4. GEMCITABINE [Concomitant]
     Active Substance: GEMCITABINE
     Dosage: UNK
     Route: 065
     Dates: start: 20250722, end: 20250912

REACTIONS (2)
  - Adrenocorticotropic hormone deficiency [Recovering/Resolving]
  - Immune-mediated adrenal insufficiency [Recovering/Resolving]

NARRATIVE: CASE EVENT DATE: 20251017
